FAERS Safety Report 5343333-7 (Version None)
Quarter: 2007Q2

REPORT INFORMATION
  Report Type: 
  Country: None (occurrence: None)
  Receive Date: 20070502
  Receipt Date: 20060510
  Transmission Date: 20071010
  Serious: Yes (Other)
  Sender: FDA-Public Use
  Company Number: PHEH2006US06226

PATIENT
  Sex: Male
  Weight: 90.7 kg

DRUGS (1)
  1. LOTREL [Suspect]
     Indication: HYPERTENSION
     Dosage: 5/20 MG, QD, ORAL
     Route: 048

REACTIONS (3)
  - ANGIOEDEMA [None]
  - OEDEMA PERIPHERAL [None]
  - SWELLING FACE [None]
